FAERS Safety Report 13116364 (Version 1)
Quarter: 2017Q1

REPORT INFORMATION
  Report Type: Spontaneous
  Country: US (occurrence: US)
  Receive Date: 20170116
  Receipt Date: 20170116
  Transmission Date: 20170428
  Serious: No
  Sender: FDA-Public Use
  Company Number: US-ASTRAZENECA-2017SE01675

PATIENT
  Age: 66 Year
  Sex: Female

DRUGS (42)
  1. ASPIRIN. [Suspect]
     Active Substance: ASPIRIN
     Route: 065
  2. MIRAPEX [Concomitant]
     Active Substance: PRAMIPEXOLE DIHYDROCHLORIDE
  3. LIDOCAINE. [Concomitant]
     Active Substance: LIDOCAINE
     Dosage: UPTO THREE PER DAY FOR 12 HOURS (AS NEEDED)
  4. POTASSIUM CL ER [Concomitant]
     Active Substance: POTASSIUM CHLORIDE
     Route: 048
  5. RESTASIS [Concomitant]
     Active Substance: CYCLOSPORINE
     Dosage: 1 DROP INTO BOTH EYES TWO TIMES DAILY
     Route: 047
  6. OSCAL [Concomitant]
     Active Substance: CALCIUM CARBONATE
     Dosage: 250-125 MG-UNIT PER TABLET, TWO TIMES DAILY
  7. BENEFIBER [Concomitant]
     Active Substance: STARCH, WHEAT
     Route: 048
  8. DIAMOX SEQUELS [Concomitant]
     Active Substance: ACETAZOLAMIDE
     Route: 048
  9. VITAMIN C [Concomitant]
     Active Substance: ASCORBIC ACID
  10. EXTRA STRENGTH STOOL SOFTENER [Concomitant]
     Active Substance: DOCUSATE SODIUM
     Dosage: 1-2 PER DAY
     Route: 048
  11. TOVIAZ [Concomitant]
     Active Substance: FESOTERODINE FUMARATE
     Route: 048
  12. GLUCOPHAGE [Concomitant]
     Active Substance: METFORMIN HYDROCHLORIDE
     Route: 048
  13. COUMADIN [Concomitant]
     Active Substance: WARFARIN SODIUM
     Dosage: VARIES, BUT USUALLY 7.5MG 4-5 DAYS AND 5MG 2-3 DAYS
     Route: 048
  14. VITAMIN B12 [Concomitant]
     Active Substance: CYANOCOBALAMIN
  15. GLUCOTROL [Concomitant]
     Active Substance: GLIPIZIDE
  16. TOPAMAX [Concomitant]
     Active Substance: TOPIRAMATE
     Dosage: TAKE ONE AND HALF TAB AT BEDTIME
  17. ZANAFLEX [Concomitant]
     Active Substance: TIZANIDINE HYDROCHLORIDE
     Dosage: TAKE ONE TABLET NIGHTLY, OR IF NEEDED EVERY 8 HOURS
  18. PRILOSEC [Concomitant]
     Active Substance: OMEPRAZOLE MAGNESIUM
     Route: 048
  19. PROVENTIL HFA [Concomitant]
     Active Substance: ALBUTEROL SULFATE
     Dosage: 2 PUFFS INTO THE UNGS EVERY 6 HOURS, AS REQUIRED
  20. CALCIUM/MAGNESIUM/ZINC [Concomitant]
  21. BUDESONIDE/FORMOTEROL FUMARATE [Suspect]
     Active Substance: BUDESONIDE\FORMOTEROL FUMARATE
     Route: 055
  22. ZOLOFT [Concomitant]
     Active Substance: SERTRALINE HYDROCHLORIDE
     Route: 048
  23. EPIPEN [Concomitant]
     Active Substance: EPINEPHRINE
     Dosage: ONLY IF NEEDED
  24. VOLTAREN [Concomitant]
     Active Substance: DICLOFENAC SODIUM
     Indication: ARTHRALGIA
     Dosage: 2-4MG, 2 TIMES A DAY AS NEEDED
     Route: 061
  25. HIPREX [Concomitant]
     Active Substance: METHENAMINE HIPPURATE
     Dosage: HALF TABLET DAILY WITH 500 MG VIT C
     Route: 048
  26. BENADRYL [Concomitant]
     Active Substance: DIPHENHYDRAMINE HYDROCHLORIDE
     Indication: URTICARIA
     Dosage: IF NEEDED
  27. TYLENOL [Concomitant]
     Active Substance: ACETAMINOPHEN
     Indication: ARTHRITIS
     Dosage: AS NEEDED
  28. VITAMIN E [Concomitant]
     Active Substance: .ALPHA.-TOCOPHEROL
  29. BEXTRA [Concomitant]
     Active Substance: VALDECOXIB
  30. ZYRTEC [Concomitant]
     Active Substance: CETIRIZINE HYDROCHLORIDE
     Route: 048
  31. LYRICA [Concomitant]
     Active Substance: PREGABALIN
     Route: 048
  32. LOPRESSOR [Concomitant]
     Active Substance: METOPROLOL TARTRATE
     Dosage: HALF TABLET AT NIGHT
     Route: 048
  33. BIOTIN [Concomitant]
     Active Substance: BIOTIN
  34. NIACIN. [Concomitant]
     Active Substance: NIACIN
  35. DIAMOX SEQUELS [Concomitant]
     Active Substance: ACETAZOLAMIDE
  36. BACTROBAN [Concomitant]
     Active Substance: MUPIROCIN\MUPIROCIN CALCIUM
     Dosage: SMALL AMOUNT AS NEEDED ONCE DAILY
     Route: 061
  37. VITAMIN D3 [Concomitant]
     Active Substance: CHOLECALCIFEROL
  38. MAGNESIUM [Concomitant]
     Active Substance: MAGNESIUM
  39. COZAAR [Concomitant]
     Active Substance: LOSARTAN POTASSIUM
     Dosage: HALF TABLET AT NIGHT
     Route: 048
  40. MULTIVITAMIN [Concomitant]
     Active Substance: VITAMINS
     Route: 048
  41. CHROMIUM PICOLINATE [Concomitant]
     Active Substance: CHROMIUM PICOLINATE
  42. CINNAMON. [Concomitant]
     Active Substance: CINNAMON
     Route: 048

REACTIONS (5)
  - Oropharyngeal pain [Unknown]
  - Abdominal pain upper [Unknown]
  - Drug hypersensitivity [Unknown]
  - Rash [Unknown]
  - Gastric haemorrhage [Unknown]
